FAERS Safety Report 5443289-2 (Version None)
Quarter: 2007Q3

REPORT INFORMATION
  Report Type: 
  Country: None (occurrence: None)
  Receive Date: 20070830
  Receipt Date: 20070817
  Transmission Date: 20080115
  Serious: Yes (Hospitalization, Other)
  Sender: FDA-Public Use
  Company Number: FABR-12093

PATIENT
  Age: 27 Year
  Sex: Male
  Weight: 69.9 kg

DRUGS (4)
  1. FABRAZYME [Suspect]
     Indication: FABRY'S DISEASE
     Dosage: 70 MG Q2WKS IV
     Route: 042
     Dates: start: 20030901
  2. PREDNISOLONE [Concomitant]
  3. PIRITON. MFR: ALLEN + HANBURYS LIMITED [Concomitant]
  4. PARACETAMOL [Concomitant]

REACTIONS (5)
  - EYELID OEDEMA [None]
  - INFUSION RELATED REACTION [None]
  - NAUSEA [None]
  - PARAESTHESIA ORAL [None]
  - RASH ERYTHEMATOUS [None]
